FAERS Safety Report 11331349 (Version 1)
Quarter: 2015Q3

REPORT INFORMATION
  Report Type: Spontaneous
  Country: ES (occurrence: ES)
  Receive Date: 20150803
  Receipt Date: 20150803
  Transmission Date: 20151125
  Serious: Yes (Other)
  Sender: FDA-Public Use
  Company Number: ES-JNJFOC-20150721645

PATIENT
  Age: 84 Year
  Sex: Male

DRUGS (2)
  1. DUROGESIC [Suspect]
     Active Substance: FENTANYL
     Indication: PRODUCT USED FOR UNKNOWN INDICATION
     Route: 062
  2. DUROGESIC [Suspect]
     Active Substance: FENTANYL
     Indication: PRODUCT USED FOR UNKNOWN INDICATION
     Dosage: 2 PATCHES OF 25 MCG/HR
     Route: 062
     Dates: start: 20150609, end: 20150610

REACTIONS (2)
  - Extra dose administered [Recovered/Resolved]
  - Neurotoxicity [Recovered/Resolved]

NARRATIVE: CASE EVENT DATE: 20150610
